FAERS Safety Report 9896692 (Version 1)
Quarter: 2014Q1

REPORT INFORMATION
  Report Type: Spontaneous
  Country: US (occurrence: US)
  Receive Date: 20140213
  Receipt Date: 20140213
  Transmission Date: 20141002
  Serious: No
  Sender: FDA-Public Use
  Company Number: US-BRISTOL-MYERS SQUIBB COMPANY-18900126

PATIENT
  Age: 41 Year
  Sex: Female
  Weight: 62.58 kg

DRUGS (1)
  1. ABATACEPT SUBQ INJECTION 125MG/ML [Suspect]
     Indication: RHEUMATOID ARTHRITIS
     Dosage: DOSE MISSED: 06MAY2013
     Route: 058
     Dates: start: 20130423

REACTIONS (2)
  - Injection site swelling [Unknown]
  - Nasopharyngitis [Unknown]
